FAERS Safety Report 7795989-7 (Version None)
Quarter: 2011Q4

REPORT INFORMATION
  Report Type: 
  Country: None (occurrence: None)
  Receive Date: 20111004
  Receipt Date: 20110928
  Transmission Date: 20120403
  Serious: Yes (Hospitalization)
  Sender: FDA-Public Use
  Company Number: CH-TEVA-303219ISR

PATIENT
  Age: 77 Year
  Sex: Female

DRUGS (3)
  1. COPAXONE [Suspect]
     Indication: MULTIPLE SCLEROSIS
     Dosage: 20 MILLIGRAM;
     Route: 058
  2. EFFEXOR [Suspect]
     Dosage: 75 MILLIGRAM;
     Route: 048
  3. RIVASTIGMINE [Suspect]
     Dosage: 18 MILLIGRAM;
     Route: 003

REACTIONS (3)
  - ELECTROCARDIOGRAM ABNORMAL [None]
  - ATRIOVENTRICULAR BLOCK SECOND DEGREE [None]
  - VENTRICULAR EXTRASYSTOLES [None]
